FAERS Safety Report 5565629-6 (Version None)
Quarter: 2007Q4

REPORT INFORMATION
  Report Type: 
  Country: None (occurrence: None)
  Receive Date: 20071218
  Receipt Date: 20071213
  Transmission Date: 20080405
  Serious: Yes (Life-Threatening)
  Sender: FDA-Public Use
  Company Number: FR-BOEHRINGER INGELHEIM PHARMACEUTICALS, INC.-2007-UK-04036UK

PATIENT
  Age: 47 Year
  Sex: Male

DRUGS (1)
  1. DOPAMINERGIC AGENTS [Suspect]
     Indication: PARKINSON'S DISEASE

REACTIONS (5)
  - ABNORMAL BEHAVIOUR [None]
  - ECONOMIC PROBLEM [None]
  - OBSESSIVE THOUGHTS [None]
  - PATHOLOGICAL GAMBLING [None]
  - SUICIDE ATTEMPT [None]
